FAERS Safety Report 19025731 (Version 1)
Quarter: 2021Q1

REPORT INFORMATION
  Report Type: Spontaneous
  Country: DE (occurrence: DE)
  Receive Date: 20210318
  Receipt Date: 20210318
  Transmission Date: 20210420
  Serious: Yes (Hospitalization)
  Sender: FDA-Public Use
  Company Number: DE-TORRENT-00019832

PATIENT
  Age: 14 Year
  Sex: Female
  Weight: 47 kg

DRUGS (1)
  1. LAMOTRIGINE. [Suspect]
     Active Substance: LAMOTRIGINE
     Indication: MOVEMENT DISORDER
     Route: 048

REACTIONS (3)
  - Memory impairment [Unknown]
  - Aggression [Unknown]
  - Fatigue [Unknown]

NARRATIVE: CASE EVENT DATE: 20181202
